FAERS Safety Report 7802745-X (Version None)
Quarter: 2011Q4

REPORT INFORMATION
  Report Type: 
  Country: None (occurrence: None)
  Receive Date: 20111007
  Receipt Date: 20110928
  Transmission Date: 20120403
  Serious: Yes (Life-Threatening, Hospitalization)
  Sender: FDA-Public Use
  Company Number: FR-ABBOTT-11P-056-0836533-00

PATIENT
  Age: 55 Year
  Sex: Male
  Weight: 78 kg

DRUGS (4)
  1. LOPERAMIDE HCL [Concomitant]
     Indication: DIARRHOEA
     Dates: start: 20060328
  2. HUMIRA [Suspect]
     Indication: CROHN'S DISEASE
     Route: 058
     Dates: start: 20080701, end: 20110505
  3. QUESTRAN [Concomitant]
     Indication: HYPERCHOLESTEROLAEMIA
     Dates: start: 20060823
  4. NOCTAMIDE [Concomitant]
     Indication: INSOMNIA
     Dates: start: 20080701

REACTIONS (3)
  - FEBRILE BONE MARROW APLASIA [None]
  - SEPSIS [None]
  - ACUTE MYELOID LEUKAEMIA [None]
